FAERS Safety Report 15413529 (Version 1)
Quarter: 2018Q4

REPORT INFORMATION
  Report Type: Spontaneous
  Country: ZA (occurrence: ZA)
  Receive Date: 20180921
  Receipt Date: 20180921
  Transmission Date: 20190204
  Serious: Yes (Other)
  Sender: FDA-Public Use
  Company Number: ZA-PFIZER INC-2018380037

PATIENT
  Age: 72 Year
  Sex: Male

DRUGS (2)
  1. ARIMENTIA [Suspect]
     Active Substance: DONEPEZIL HYDROCHLORIDE
     Dosage: 5 MG, UNK
  2. ASPAVOR [Suspect]
     Active Substance: ATORVASTATIN
     Dosage: 10 MG, UNK

REACTIONS (1)
  - Dementia Alzheimer^s type [Not Recovered/Not Resolved]
